FAERS Safety Report 6609922-4 (Version None)
Quarter: 2010Q1

REPORT INFORMATION
  Report Type: 
  Country: None (occurrence: None)
  Receive Date: 20100302
  Receipt Date: 20100217
  Transmission Date: 20100710
  Serious: Yes (Other)
  Sender: FDA-Public Use
  Company Number: JP-GENENTECH-297429

PATIENT
  Sex: Male

DRUGS (14)
  1. RITUXIMAB [Suspect]
     Indication: CYTOMEGALOVIRUS CHORIORETINITIS
     Dosage: UNK
     Route: 041
  2. VALGANCICLOVIR HCL [Suspect]
     Indication: CYTOMEGALOVIRUS CHORIORETINITIS
     Dosage: 900 MG, UNK
     Route: 048
     Dates: start: 20080202, end: 20080215
  3. VALGANCICLOVIR HCL [Suspect]
     Dosage: 900 MG, UNK
     Route: 048
     Dates: end: 20080807
  4. VALGANCICLOVIR HCL [Suspect]
     Dosage: 900 MG, UNK
     Route: 048
     Dates: start: 20080716, end: 20080817
  5. VALGANCICLOVIR HCL [Suspect]
     Dosage: 900 MG, UNK
     Route: 048
     Dates: start: 20080822, end: 20080911
  6. VALGANCICLOVIR HCL [Suspect]
     Dosage: 450 MG, UNK
     Route: 048
     Dates: start: 20080919, end: 20081030
  7. VALGANCICLOVIR HCL [Suspect]
     Dosage: 450 MG, UNK
     Route: 048
     Dates: start: 20081201, end: 20081222
  8. GANCICLOVIR [Suspect]
     Indication: CYTOMEGALOVIRUS CHORIORETINITIS
     Dosage: 10 MG/KG, UNK
     Route: 042
     Dates: start: 20080202, end: 20080215
  9. DOXORUBICIN HCL [Suspect]
     Indication: DRUG USE FOR UNKNOWN INDICATION
     Dosage: UNK
     Route: 042
  10. VINCRISTINE SULFATE [Suspect]
     Indication: DRUG USE FOR UNKNOWN INDICATION
     Dosage: UNK
     Route: 042
  11. ALKYLATING AGENTS [Suspect]
     Indication: DRUG USE FOR UNKNOWN INDICATION
     Dosage: UNK
     Route: 065
  12. CYTARABINE [Suspect]
     Indication: DRUG USE FOR UNKNOWN INDICATION
     Dosage: UNK
     Route: 051
  13. STOCRIN [Concomitant]
     Indication: DRUG USE FOR UNKNOWN INDICATION
     Dosage: UNK
     Route: 048
     Dates: start: 20080130
  14. EPZICOM [Concomitant]
     Indication: DRUG USE FOR UNKNOWN INDICATION
     Dosage: UNK
     Route: 048
     Dates: start: 20080130

REACTIONS (1)
  - PANCYTOPENIA [None]
